FAERS Safety Report 12900371 (Version 5)
Quarter: 2018Q3

REPORT INFORMATION
  Report Type: Spontaneous
  Country: GB (occurrence: GB)
  Receive Date: 20161101
  Receipt Date: 20180711
  Transmission Date: 20181010
  Serious: Yes (Hospitalization)
  Sender: FDA-Public Use
  Company Number: GB-BEH-2016074688

PATIENT
  Age: 81 Year
  Sex: Male
  Weight: 71 kg

DRUGS (2)
  1. HIZENTRA [Suspect]
     Active Substance: HUMAN IMMUNOGLOBULIN G
     Indication: PRIMARY IMMUNODEFICIENCY SYNDROME
     Dosage: 16 G, TIW
     Route: 058
     Dates: start: 20160927, end: 20160927
  2. HIZENTRA [Suspect]
     Active Substance: HUMAN IMMUNOGLOBULIN G
     Dosage: 16 G, TIW
     Route: 058
     Dates: start: 20150623, end: 201609

REACTIONS (6)
  - Adverse drug reaction [Recovered/Resolved]
  - Administration site swelling [Recovered/Resolved]
  - Abdominal pain [Unknown]
  - Administration site pain [Recovered/Resolved]
  - Administration site reaction [Unknown]
  - Administration site erythema [Recovered/Resolved]

NARRATIVE: CASE EVENT DATE: 20160927
